FAERS Safety Report 7875503-8 (Version None)
Quarter: 2011Q4

REPORT INFORMATION
  Report Type: 
  Country: None (occurrence: None)
  Receive Date: 20111031
  Receipt Date: 20111024
  Transmission Date: 20120403
  Serious: Yes (Other)
  Sender: FDA-Public Use
  Company Number: PHHY2011BR95171

PATIENT
  Age: 56 Year
  Sex: Female

DRUGS (5)
  1. METFFORMIN HYDROCHLORIDE [Concomitant]
     Indication: DIABETES MELLITUS
     Dosage: 2 DF, (850MG ) DAILY
  2. EXFORGE [Suspect]
     Dosage: 2 DF,(160/5MG) DAILY
  3. INSULIN [Concomitant]
     Indication: DIABETES MELLITUS
     Dosage: 40 U, DAILY
  4. EXFORGE [Suspect]
     Indication: HYPERTENSION
     Dosage: 2 DF(80/5MG ) QD
  5. EXFORGE [Suspect]
     Dosage: 1 DF (160/5MG)

REACTIONS (2)
  - HYPERTHYROIDISM [None]
  - BLOOD PRESSURE INCREASED [None]
